FAERS Safety Report 6684481-9 (Version None)
Quarter: 2010Q2

REPORT INFORMATION
  Report Type: 
  Country: None (occurrence: None)
  Receive Date: 20100416
  Receipt Date: 20100409
  Transmission Date: 20101027
  Serious: Yes (Hospitalization)
  Sender: FDA-Public Use
  Company Number: FR-BRISTOL-MYERS SQUIBB COMPANY-15057953

PATIENT
  Age: 78 Year
  Sex: Female

DRUGS (4)
  1. COAPROVEL FILM-COATED TABS 300/12.5 MG [Suspect]
     Indication: HYPERTENSION
     Dosage: 1DF-300MG/12.5MG
     Dates: end: 20100126
  2. ACEBUTOLOL HCL [Concomitant]
     Indication: HYPERTENSION
  3. CRESTOR [Concomitant]
     Indication: HYPERCHOLESTEROLAEMIA
  4. ALLOPURINOL [Concomitant]
     Indication: HYPERURICAEMIA

REACTIONS (8)
  - ABDOMINAL PAIN [None]
  - ANAEMIA [None]
  - ASTHENIA [None]
  - DIARRHOEA [None]
  - HYPOTENSION [None]
  - MALAISE [None]
  - RENAL FAILURE ACUTE [None]
  - VOMITING [None]
